FAERS Safety Report 24964598 (Version 1)
Quarter: 2025Q1

REPORT INFORMATION
  Report Type: Other
  Country: CA (occurrence: CA)
  Receive Date: 20250213
  Receipt Date: 20250213
  Transmission Date: 20250409
  Serious: Yes (Other)
  Sender: ALVOGEN
  Company Number: CA-ALVOGEN-2025096238

PATIENT
  Age: 32 Year
  Sex: Male

DRUGS (1)
  1. FENTANYL [Suspect]
     Active Substance: FENTANYL
     Indication: Product used for unknown indication

REACTIONS (2)
  - Hepatitis C [Unknown]
  - Drug abuse [Unknown]

NARRATIVE: CASE EVENT DATE: 20220524
